FAERS Safety Report 17667677 (Version 2)
Quarter: 2020Q2

REPORT INFORMATION
  Report Type: Report from Study
  Country: DE (occurrence: DE)
  Receive Date: 20200414
  Receipt Date: 20200520
  Transmission Date: 20200713
  Serious: Yes (Other)
  Sender: FDA-Public Use
  Company Number: DE-TEVA-2020-DE-1221773

PATIENT
  Age: 22 Year
  Sex: Female

DRUGS (2)
  1. NITRO SPRAY [Suspect]
     Active Substance: NITROGLYCERIN
     Indication: TILT TABLE TEST
     Route: 048
     Dates: start: 20181220, end: 20181220
  2. COPAXONE [Suspect]
     Active Substance: GLATIRAMER ACETATE
     Indication: MULTIPLE SCLEROSIS
     Dates: start: 20180312, end: 20191213

REACTIONS (4)
  - Cardiac dysfunction [Not Recovered/Not Resolved]
  - Syncope [Recovered/Resolved]
  - Postural orthostatic tachycardia syndrome [Unknown]
  - Heart rate increased [Unknown]

NARRATIVE: CASE EVENT DATE: 201811
